FAERS Safety Report 11293054 (Version 1)
Quarter: 2015Q3

REPORT INFORMATION
  Report Type: Spontaneous
  Country: GB (occurrence: GB)
  Receive Date: 20150722
  Receipt Date: 20150722
  Transmission Date: 20151125
  Serious: Yes (Hospitalization)
  Sender: FDA-Public Use
  Company Number: GB-TEVA-578909ACC

PATIENT
  Age: 83 Year
  Sex: Female
  Weight: 97 kg

DRUGS (24)
  1. CODEINE [Concomitant]
     Active Substance: CODEINE
  2. COSOPT [Concomitant]
     Active Substance: DORZOLAMIDE HYDROCHLORIDE\TIMOLOL MALEATE
  3. ATROPINE. [Concomitant]
     Active Substance: ATROPINE
  4. DEXAMETHASONE. [Concomitant]
     Active Substance: DEXAMETHASONE
  5. HUMALOG MIX50/50 [Concomitant]
     Active Substance: INSULIN LISPRO
  6. NICORANDIL [Concomitant]
     Active Substance: NICORANDIL
  7. OMEPRAZOLE. [Concomitant]
     Active Substance: OMEPRAZOLE
  8. BUMETANIDE. [Concomitant]
     Active Substance: BUMETANIDE
  9. ISOSORBIDE. [Concomitant]
     Active Substance: ISOSORBIDE
  10. SENNA [Concomitant]
     Active Substance: SENNA LEAF\SENNOSIDES\SENNOSIDES A AND B
  11. TIOTROPIUM [Concomitant]
     Active Substance: TIOTROPIUM
  12. BISOPROLOL [Suspect]
     Active Substance: BISOPROLOL
     Dosage: 10 MILLIGRAM DAILY;
     Route: 048
     Dates: end: 20150706
  13. TRIMETHOPRIM. [Suspect]
     Active Substance: TRIMETHOPRIM
     Indication: URINARY TRACT INFECTION
     Dosage: 400 MILLIGRAM DAILY;
     Route: 048
     Dates: start: 20150629, end: 20150704
  14. DIGOXIN. [Suspect]
     Active Substance: DIGOXIN
     Indication: ATRIAL FIBRILLATION
     Dosage: 125 MICROGRAM DAILY;
     Route: 048
     Dates: start: 20150629, end: 20150706
  15. ALLOPURINOL. [Concomitant]
     Active Substance: ALLOPURINOL
  16. CALCICHEW D3 [Concomitant]
     Active Substance: CALCIUM\CHOLECALCIFEROL
  17. SALBUTAMOL [Concomitant]
     Active Substance: ALBUTEROL
  18. LATANOPROST. [Concomitant]
     Active Substance: LATANOPROST
  19. PARACETAMOL [Concomitant]
     Active Substance: ACETAMINOPHEN
  20. PROCHLORPERAZINE. [Concomitant]
     Active Substance: PROCHLORPERAZINE
  21. RANOLAZINE [Concomitant]
     Active Substance: RANOLAZINE
  22. LINAGLIPTIN [Concomitant]
     Active Substance: LINAGLIPTIN
  23. FENTANYL. [Concomitant]
     Active Substance: FENTANYL
  24. PREDNISOLONE. [Concomitant]
     Active Substance: PREDNISOLONE

REACTIONS (4)
  - Bradycardia [Recovering/Resolving]
  - Hyperkalaemia [Recovering/Resolving]
  - Fall [Recovering/Resolving]
  - Acute kidney injury [Recovering/Resolving]
